FAERS Safety Report 17298861 (Version 1)
Quarter: 2020Q1

REPORT INFORMATION
  Report Type: Spontaneous
  Country: US (occurrence: US)
  Receive Date: 20200122
  Receipt Date: 20200122
  Transmission Date: 20200409
  Serious: No
  Sender: FDA-Public Use
  Company Number: US-HORIZON-KRY-0079-2020

PATIENT
  Age: 36 Year
  Sex: Male

DRUGS (11)
  1. BUPROPION. [Concomitant]
     Active Substance: BUPROPION
  2. COLCHICINE. [Concomitant]
     Active Substance: COLCHICINE
  3. EUCRISA [Concomitant]
     Active Substance: CRISABOROLE
  4. LABETOLOL [Concomitant]
     Active Substance: LABETALOL HYDROCHLORIDE
  5. SERTRALINE [Concomitant]
     Active Substance: SERTRALINE HYDROCHLORIDE
  6. ONDANSETRON [Concomitant]
     Active Substance: ONDANSETRON
  7. MIRTAZAPINE. [Concomitant]
     Active Substance: MIRTAZAPINE
  8. KRYSTEXXA [Suspect]
     Active Substance: PEGLOTICASE
     Indication: GOUT
     Dosage: 8MG EVERY 2 WEEKS
     Route: 042
     Dates: start: 20191219
  9. AMLODIPINE [Concomitant]
     Active Substance: AMLODIPINE BESYLATE
  10. PANTOPRAZOLE [Concomitant]
     Active Substance: PANTOPRAZOLE
  11. LOSARTAN. [Concomitant]
     Active Substance: LOSARTAN

REACTIONS (1)
  - Therapeutic response decreased [Unknown]

NARRATIVE: CASE EVENT DATE: 20200116
